FAERS Safety Report 25171295 (Version 1)
Quarter: 2025Q2

REPORT INFORMATION
  Report Type: Report from Study
  Country: US (occurrence: US)
  Receive Date: 20250408
  Receipt Date: 20250408
  Transmission Date: 20250716
  Serious: No
  Sender: DR REDDYS
  Company Number: US-DRL-USA-USA/2025/04/005052

PATIENT
  Sex: Female
  Weight: 63.5 kg

DRUGS (1)
  1. JAVYGTOR [Suspect]
     Active Substance: SAPROPTERIN DIHYDROCHLORIDE
     Indication: Hyperphenylalaninaemia
     Dosage: DOSE: 12 TABLETS OF 100 MG
     Route: 048

REACTIONS (2)
  - Abdominal pain upper [Recovered/Resolved]
  - Wrong technique in product usage process [Unknown]
